FAERS Safety Report 9970372 (Version 1)
Quarter: 2014Q1

REPORT INFORMATION
  Report Type: Report from Study
  Country: US (occurrence: US)
  Receive Date: 20140306
  Receipt Date: 20140306
  Transmission Date: 20141002
  Serious: No
  Sender: FDA-Public Use
  Company Number: US-ABBVIE-13P-163-1148980-00

PATIENT
  Sex: Female
  Weight: 59.02 kg

DRUGS (4)
  1. HUMIRA [Suspect]
     Indication: RHEUMATOID ARTHRITIS
     Dates: start: 201207, end: 201307
  2. DIOVAN [Concomitant]
     Indication: HYPERTENSION
  3. DOXEPIN [Concomitant]
     Indication: INSOMNIA
  4. XANAX [Concomitant]
     Indication: ANXIETY
     Dosage: AS NEEDED

REACTIONS (3)
  - Scar [Not Recovered/Not Resolved]
  - Rash [Recovered/Resolved]
  - Rash pruritic [Recovered/Resolved]
